FAERS Safety Report 5304083-6 (Version None)
Quarter: 2007Q2

REPORT INFORMATION
  Report Type: 
  Country: None (occurrence: None)
  Receive Date: 20070422
  Receipt Date: 20070410
  Transmission Date: 20071010
  Serious: Yes (Hospitalization)
  Sender: FDA-Public Use
  Company Number: FR-ELI_LILLY_AND_COMPANY-FR200704002238

PATIENT
  Age: 80 Year
  Sex: Female

DRUGS (4)
  1. FORTEO [Suspect]
     Indication: OSTEOPOROSIS
     Dosage: 20 UG, DAILY (1/D)
     Route: 058
     Dates: start: 20060627, end: 20070313
  2. TEMESTA [Concomitant]
     Indication: INITIAL INSOMNIA
  3. LEXOMIL [Concomitant]
     Indication: INITIAL INSOMNIA
  4. DIANTALVIC [Concomitant]
     Indication: PAIN

REACTIONS (4)
  - ARTHRALGIA [None]
  - BONE FISSURE [None]
  - PAIN IN EXTREMITY [None]
  - SKIN ULCER [None]
